FAERS Safety Report 14034342 (Version 1)
Quarter: 2017Q4

REPORT INFORMATION
  Report Type: Spontaneous
  Country: CN (occurrence: CN)
  Receive Date: 20171003
  Receipt Date: 20171003
  Transmission Date: 20180321
  Serious: Yes (Hospitalization)
  Sender: FDA-Public Use
  Company Number: CN-009507513-1710CHN000126

PATIENT
  Age: 62 Year
  Sex: Male
  Weight: 61 kg

DRUGS (1)
  1. TIENAM [Suspect]
     Active Substance: CILASTATIN SODIUM\IMIPENEM
     Indication: INFECTION
     Dosage: 0.5 G, QID
     Route: 041
     Dates: start: 20170705, end: 20170722

REACTIONS (1)
  - Tic [Recovering/Resolving]

NARRATIVE: CASE EVENT DATE: 20170722
